FAERS Safety Report 20038347 (Version 1)
Quarter: 2021Q4

REPORT INFORMATION
  Report Type: Spontaneous
  Country: US (occurrence: US)
  Receive Date: 20211105
  Receipt Date: 20211105
  Transmission Date: 20220303
  Serious: No
  Sender: FDA-Public Use
  Company Number: US-EYEVANCE PHARMACEUTICALS-2021EYE00078

PATIENT
  Age: 82 Year
  Sex: Female
  Weight: 72.562 kg

DRUGS (4)
  1. NATACYN [Suspect]
     Active Substance: NATAMYCIN
     Indication: Eye infection fungal
     Dosage: 2 DROPS, EVERY 2 HOURS
     Route: 047
     Dates: start: 202107, end: 20210726
  2. NATACYN [Suspect]
     Active Substance: NATAMYCIN
     Dosage: 2 DROPS, EVERY 2 HOURS
     Route: 047
     Dates: start: 20210727
  3. UNSPECIFIED ANTIBIOTIC DROP [Concomitant]
     Dosage: EVERY 4 HOURS
  4. VANCOMYCIN [Concomitant]
     Active Substance: VANCOMYCIN
     Dosage: UNK

REACTIONS (6)
  - Eye discharge [Recovering/Resolving]
  - Foreign body in eye [Recovered/Resolved]
  - Product physical consistency issue [Recovering/Resolving]
  - Product quality issue [Recovering/Resolving]
  - Product delivery mechanism issue [Recovering/Resolving]
  - Incorrect dose administered by product [Recovered/Resolved]

NARRATIVE: CASE EVENT DATE: 20210701
